FAERS Safety Report 7506210-9 (Version None)
Quarter: 2011Q2

REPORT INFORMATION
  Report Type: 
  Country: None (occurrence: None)
  Receive Date: 20110526
  Receipt Date: 20110512
  Transmission Date: 20111010
  Serious: Yes (Hospitalization, Other)
  Sender: FDA-Public Use
  Company Number: HR-JNJFOC-20110505563

PATIENT
  Sex: Female

DRUGS (11)
  1. RISPERIDONE [Suspect]
     Indication: ACUTE PSYCHOSIS
  2. HALDOL [Suspect]
     Indication: ACUTE PSYCHOSIS
     Route: 065
     Dates: start: 20010101
  3. RISPERDAL CONSTA [Suspect]
     Indication: SCHIZOAFFECTIVE DISORDER
     Route: 030
     Dates: start: 20060101, end: 20090101
  4. SERTRALINE HYDROCHLORIDE [Suspect]
     Indication: SCHIZOAFFECTIVE DISORDER
     Route: 065
     Dates: start: 20050101
  5. RISPERDAL CONSTA [Suspect]
     Route: 030
     Dates: start: 20090101
  6. DEPAKENE [Suspect]
     Route: 065
  7. AKINETON [Suspect]
     Indication: PRODUCT USED FOR UNKNOWN INDICATION
     Route: 065
  8. DIAZEPAM [Suspect]
     Indication: ACUTE PSYCHOSIS
     Route: 065
     Dates: start: 20010101
  9. RISPERIDONE [Suspect]
     Dates: start: 20010101
  10. RISPERIDONE [Suspect]
     Dates: start: 20090101
  11. DEPAKENE [Suspect]
     Indication: SCHIZOAFFECTIVE DISORDER
     Route: 065
     Dates: start: 20070101

REACTIONS (5)
  - SUICIDE ATTEMPT [None]
  - AGGRESSION [None]
  - SCHIZOAFFECTIVE DISORDER [None]
  - TREATMENT NONCOMPLIANCE [None]
  - INCORRECT DOSE ADMINISTERED [None]
